FAERS Safety Report 11933324 (Version 1)
Quarter: 2016Q1

REPORT INFORMATION
  Report Type: Spontaneous
  Country: US (occurrence: US)
  Receive Date: 20160121
  Receipt Date: 20160121
  Transmission Date: 20160526
  Serious: No
  Sender: FDA-Public Use
  Company Number: US-TEVA-596921USA

PATIENT
  Sex: Female

DRUGS (3)
  1. LISINOPRIL. [Suspect]
     Active Substance: LISINOPRIL
     Route: 065
  2. LEVOXYL [Suspect]
     Active Substance: LEVOTHYROXINE SODIUM
     Route: 065
  3. HYDROCHLOROTHIAZIDE. [Suspect]
     Active Substance: HYDROCHLOROTHIAZIDE
     Indication: HYPERTENSION
     Route: 065

REACTIONS (4)
  - Flushing [Unknown]
  - Headache [Unknown]
  - Heart rate increased [Unknown]
  - Chest discomfort [Unknown]
